FAERS Safety Report 16914119 (Version 1)
Quarter: 2019Q4

REPORT INFORMATION
  Report Type: Report from Study
  Country: BE (occurrence: BE)
  Receive Date: 20191014
  Receipt Date: 20191014
  Transmission Date: 20200122
  Serious: Yes (Other)
  Sender: FDA-Public Use
  Company Number: BE-ROCHE-2439784

PATIENT

DRUGS (1)
  1. VALGANCICLOVIR. [Suspect]
     Active Substance: VALGANCICLOVIR
     Indication: CYTOMEGALOVIRUS INFECTION
     Route: 065

REACTIONS (6)
  - Acute graft versus host disease [Unknown]
  - Cytomegalovirus infection [Unknown]
  - Pneumonia [Unknown]
  - Sepsis [Unknown]
  - Bacterial sepsis [Unknown]
  - Neutropenia [Unknown]
